FAERS Safety Report 5430341-0 (Version None)
Quarter: 2007Q3

REPORT INFORMATION
  Report Type: 
  Country: None (occurrence: None)
  Receive Date: 20070828
  Receipt Date: 20070820
  Transmission Date: 20080115
  Serious: Yes (Hospitalization, Other)
  Sender: FDA-Public Use
  Company Number: 2007JP003684

PATIENT
  Age: 85 Year
  Sex: Female

DRUGS (15)
  1. VESICARE [Suspect]
     Indication: HYPERTONIC BLADDER
     Dosage: 2.5 MG, D, ORAL
     Route: 048
     Dates: start: 20070604, end: 20070601
  2. VESICARE [Suspect]
     Indication: HYPERTONIC BLADDER
     Dosage: 2.5 MG, D, ORAL
     Route: 048
     Dates: start: 20070709, end: 20070803
  3. GRAMALIL (TIAPRIDE HYDROCHLORIDE) TABLET [Concomitant]
  4. BUFFERIN (ALUMINIUM GLYCINATE) TABLET [Concomitant]
  5. EPADEL (ETHYL ICOSAPENTATE) [Concomitant]
  6. IMPROMEN (BROMPERIDOL) TABLET [Concomitant]
  7. ALFAROL (ALFACALCIDOL) CAPSULE [Concomitant]
  8. GEFANIL (GEFARNATE) CAPSULE [Concomitant]
  9. PURSENNID (SENNOSIDE A+B) TABLET [Concomitant]
  10. ADOFEED (FLURBIPROFEN) [Concomitant]
  11. IBUPROFEN GRANULE [Concomitant]
  12. KITAZEMIN (MEQUITAZINE) FINE GRANULE [Concomitant]
  13. MARZULENE S (LEVOGLUTAMIDE, SODIUM GUALENATE) GRANULE [Concomitant]
  14. FLOMOX (CEFCAPENE PIVOXIL HYDROCHLORIDE) TABLET [Concomitant]
  15. SELBEX (TEPRENONE) FINE GRANULE [Concomitant]

REACTIONS (6)
  - CONJUNCTIVAL HYPERAEMIA [None]
  - DEPRESSED LEVEL OF CONSCIOUSNESS [None]
  - JOINT CONTRACTURE [None]
  - RENAL FAILURE ACUTE [None]
  - RHABDOMYOLYSIS [None]
  - URINARY RETENTION [None]
